FAERS Safety Report 5319816-2 (Version None)
Quarter: 2007Q1

REPORT INFORMATION
  Report Type: 
  Country: None (occurrence: None)
  Receive Date: 20070205
  Receipt Date: 20060123
  Transmission Date: 20070707
  Serious: Yes (Hospitalization, Disabling)
  Sender: FDA-Public Use
  Company Number: 980505-107053275

PATIENT
  Age: 16 Year
  Sex: Male

DRUGS (17)
  1. FLOXIN [Suspect]
     Indication: INFECTION PROPHYLAXIS
     Dosage: 400 MG, 2 IN 1 DAY, ORAL
     Route: 048
     Dates: start: 19980305, end: 19980311
  2. FLOXIN [Suspect]
     Indication: INFECTION PROPHYLAXIS
     Dosage: 400 MG, 2 IN 1 DAY, ORAL
     Route: 048
     Dates: start: 19980422, end: 19980427
  3. NEUPOGEN [Concomitant]
  4. FLUCONAZOLE [Concomitant]
  5. CYCLOPHOSPHAMIDE [Concomitant]
  6. ETOPOSIDE [Concomitant]
  7. DEXAMETHASONE TAB [Concomitant]
  8. ZOFRAN [Concomitant]
  9. MESNA [Concomitant]
  10. LORAZEPAM [Concomitant]
  11. SULFAMETHIZOLE (SULFAMETHIZOLE) [Concomitant]
  12. HEPARIN [Concomitant]
  13. PHENYTOIN [Concomitant]
  14. BUSULFAN (BUSULFAN) [Concomitant]
  15. PEPCID [Concomitant]
  16. DIPHENHYDRAMINE HCL [Concomitant]
  17. ZANTAC [Concomitant]

REACTIONS (7)
  - AGGRESSION [None]
  - AGITATION [None]
  - DELUSION [None]
  - HALLUCINATION [None]
  - INSOMNIA [None]
  - MANIA [None]
  - PSYCHOTIC DISORDER [None]
